FAERS Safety Report 19871008 (Version 1)
Quarter: 2021Q3

REPORT INFORMATION
  Report Type: Spontaneous
  Country: US (occurrence: US)
  Receive Date: 20210922
  Receipt Date: 20210922
  Transmission Date: 20211014
  Serious: No
  Sender: FDA-Public Use
  Company Number: None

PATIENT
  Age: 49 Year
  Sex: Male
  Weight: 94.5 kg

DRUGS (4)
  1. MEKTOVI [Suspect]
     Active Substance: BINIMETINIB
     Indication: AMELOBLASTIC CARCINOMA
     Route: 048
     Dates: start: 20210917, end: 20210921
  2. BRAFTOVI [Suspect]
     Active Substance: ENCORAFENIB
     Indication: METASTATIC NEOPLASM
     Route: 048
     Dates: start: 20210917, end: 20210921
  3. MEKTOVI [Suspect]
     Active Substance: BINIMETINIB
     Indication: METASTATIC NEOPLASM
     Route: 048
     Dates: start: 20210917, end: 20210921
  4. BRAFTOVI [Suspect]
     Active Substance: ENCORAFENIB
     Indication: AMELOBLASTIC CARCINOMA
     Route: 048
     Dates: start: 20210917, end: 20210921

REACTIONS (1)
  - Eye disorder [None]

NARRATIVE: CASE EVENT DATE: 20210921
